FAERS Safety Report 7386542-8 (Version None)
Quarter: 2011Q1

REPORT INFORMATION
  Report Type: 
  Country: None (occurrence: None)
  Receive Date: 20110323
  Receipt Date: 20110304
  Transmission Date: 20110831
  Serious: Yes (Hospitalization)
  Sender: FDA-Public Use
  Company Number: 012262

PATIENT
  Age: 84 Year
  Sex: Female

DRUGS (20)
  1. ATENOLOL [Concomitant]
  2. CLOPIDOGREL [Concomitant]
  3. PEGAPTANIB SODIUM; PLACEBO (CODE NOT BROKEN)  UNKNOWN [Suspect]
     Indication: MACULAR OEDEMA
     Dosage: EVERY 6 WEEKS;
     Dates: start: 20071210
  4. MIXTARD HUMAN 70/30 [Concomitant]
  5. TROPICAMIDE [Concomitant]
  6. GTN (GLYCERYL TRINITRATE) [Concomitant]
  7. AMLODIPINE [Concomitant]
  8. RAMIPRIL [Concomitant]
  9. NICORANDIL [Concomitant]
  10. OFLACACIN [Concomitant]
  11. FUROSEMIDE [Concomitant]
  12. LANSOPRAZOLE [Concomitant]
  13. INSULIN RETARD LEO (INSULIN INJECTION, ISOPHANE) [Concomitant]
  14. ISOTARD (ISOSORBIDE DINITRATE) [Concomitant]
  15. SENNA [Concomitant]
  16. PHENYLEPHRINE HCL [Concomitant]
  17. FUROSEMIDE [Concomitant]
  18. ATORVASTATIN [Concomitant]
  19. POVIDONE IODINE [Concomitant]
  20. SIMVASTATIN [Concomitant]

REACTIONS (1)
  - ANGINA UNSTABLE [None]
